FAERS Safety Report 8831410 (Version 1)
Quarter: 2012Q4

REPORT INFORMATION
  Report Type: 
  Country: CN (occurrence: CN)
  Receive Date: 20121009
  Receipt Date: 20121009
  Transmission Date: 20130627
  Serious: Yes (Other)
  Sender: FDA-Public Use
  Company Number: CN-WATSON-2012-16921

PATIENT
  Age: 8 Year
  Sex: Male

DRUGS (2)
  1. LEVETIRACETAM (UNKNOWN) [Suspect]
     Indication: JUVENILE MYOCLONIC EPILEPSY
     Dosage: 500 mg, daily
     Route: 065
  2. LEVETIRACETAM (UNKNOWN) [Suspect]
     Dosage: 250 mg, daily (6 mg/kg)
     Route: 065

REACTIONS (2)
  - Condition aggravated [Recovered/Resolved]
  - Drug ineffective [Not Recovered/Not Resolved]
